FAERS Safety Report 23241379 (Version 1)
Quarter: 2023Q4

REPORT INFORMATION
  Report Type: Spontaneous
  Country: GB (occurrence: GB)
  Receive Date: 20231129
  Receipt Date: 20231129
  Transmission Date: 20240110
  Serious: Yes (Death, Hospitalization)
  Sender: FDA-Public Use
  Company Number: GB-ELI_LILLY_AND_COMPANY-GB202311001478

PATIENT
  Age: 69 Year
  Sex: Female

DRUGS (1)
  1. OLANZAPINE [Suspect]
     Active Substance: OLANZAPINE
     Indication: Bipolar disorder
     Dosage: UNK
     Route: 065

REACTIONS (7)
  - Dysphagia [Fatal]
  - Aspiration [Fatal]
  - Bipolar disorder [Fatal]
  - Fall [Fatal]
  - Sepsis [Fatal]
  - Pneumonia [Fatal]
  - Choking [Fatal]

NARRATIVE: CASE EVENT DATE: 20170301
